FAERS Safety Report 7386952-9 (Version None)
Quarter: 2011Q1

REPORT INFORMATION
  Report Type: 
  Country: None (occurrence: None)
  Receive Date: 20110331
  Receipt Date: 20110329
  Transmission Date: 20110831
  Serious: No
  Sender: FDA-Public Use
  Company Number: US-PFIZER INC-2011069639

PATIENT
  Sex: Female

DRUGS (2)
  1. EFFEXOR XR [Suspect]
     Dosage: 37.5 MG EVERY MORNING AND 75 MG EVERY EVENING
  2. EFFEXOR XR [Suspect]
     Dosage: 150 MG, 1X/DAY (EVERY MORNING)

REACTIONS (2)
  - VISUAL IMPAIRMENT [None]
  - FATIGUE [None]
